FAERS Safety Report 19760461 (Version 8)
Quarter: 2022Q1

REPORT INFORMATION
  Report Type: Spontaneous
  Country: DE (occurrence: DE)
  Receive Date: 20210830
  Receipt Date: 20220302
  Transmission Date: 20220423
  Serious: Yes (Hospitalization, Other)
  Sender: FDA-Public Use
  Company Number: NVSC2020DE269502

PATIENT
  Age: 42 Year
  Sex: Female
  Weight: 61 kg

DRUGS (18)
  1. OXYCODONE [Suspect]
     Active Substance: OXYCODONE
     Indication: Pain
     Dosage: 20 MG. 0.5 DAY
     Route: 065
     Dates: end: 20210513
  2. OXYCODONE [Suspect]
     Active Substance: OXYCODONE
     Dosage: 10 MG. 0.5 DAY (TOGETHER WITH NALOXON)
     Route: 065
  3. PANTOPRAZOLE [Suspect]
     Active Substance: PANTOPRAZOLE
     Indication: Product used for unknown indication
     Dosage: 20 MG
     Route: 065
  4. CORTISONE [Suspect]
     Active Substance: CORTISONE
     Indication: Product used for unknown indication
     Dosage: 3000 MG, QD (1000 MG, 3X/DAY)
     Route: 065
  5. NABIXIMOLS [Suspect]
     Active Substance: NABIXIMOLS
     Indication: Product used for unknown indication
     Dosage: 2 DF, 0.16 DAY (2-2-2, 2 PUFFS EACH) (SPRAY)
     Route: 065
     Dates: start: 202007
  6. NALOXONE HYDROCHLORIDE [Suspect]
     Active Substance: NALOXONE HYDROCHLORIDE
     Indication: Product used for unknown indication
     Dosage: 5 MG (TOGETHER WITH OXYCODON)
     Route: 065
     Dates: end: 20210513
  7. DESOGESTREL [Concomitant]
     Active Substance: DESOGESTREL
     Indication: Product used for unknown indication
     Dosage: UNK
     Route: 065
  8. ACETAMINOPHEN [Concomitant]
     Active Substance: ACETAMINOPHEN
     Indication: Product used for unknown indication
     Dosage: UNK, TID (UP TO 3 TIMES PER DAY)
     Route: 065
  9. MIRTAZAPINE [Concomitant]
     Active Substance: MIRTAZAPINE
     Indication: Product used for unknown indication
     Dosage: 7.5 MG
     Route: 065
  10. PREGABALIN [Concomitant]
     Active Substance: PREGABALIN
     Indication: Pain
     Dosage: 600 MG
     Route: 048
     Dates: start: 2019
  11. PREGABALIN [Concomitant]
     Active Substance: PREGABALIN
     Dosage: 200 MG (FREQ:.33 D)
     Route: 065
  12. PREGABALIN [Concomitant]
     Active Substance: PREGABALIN
     Dosage: 100 MG, 0.16 D (2-2-2)
     Route: 065
  13. PREGABALIN [Concomitant]
     Active Substance: PREGABALIN
     Dosage: 600 MG
     Route: 065
  14. AMITRIPTYLINE [Concomitant]
     Active Substance: AMITRIPTYLINE
     Indication: Pain
     Dosage: 25 MG, QD
     Route: 048
     Dates: start: 2019
  15. AMITRIPTYLINE [Concomitant]
     Active Substance: AMITRIPTYLINE
     Dosage: 25 MG, QD (0-0-1 )
     Route: 065
  16. AMITRIPTYLINE [Concomitant]
     Active Substance: AMITRIPTYLINE
     Dosage: 50 MG, QD (0-0-1)
     Route: 065
  17. MOVICOL [Concomitant]
     Active Substance: POLYETHYLENE GLYCOL 3350\POTASSIUM CHLORIDE\SODIUM BICARBONATE\SODIUM CHLORIDE
     Indication: Product used for unknown indication
     Dosage: UNK UNK, QD (1-0-0)
     Route: 065
  18. DULOXETINE [Concomitant]
     Active Substance: DULOXETINE
     Indication: Product used for unknown indication
     Dosage: 30 MG, 0.5 D (1-0-1)
     Route: 065

REACTIONS (63)
  - Multiple sclerosis relapse [Recovered/Resolved]
  - Loss of consciousness [Unknown]
  - Benign neoplasm of thyroid gland [Not Recovered/Not Resolved]
  - Thyroid mass [Not Recovered/Not Resolved]
  - Constipation [Recovered/Resolved]
  - Fatigue [Recovered/Resolved]
  - Chills [Recovered/Resolved]
  - Chills [Recovered/Resolved]
  - Fungal skin infection [Recovered/Resolved]
  - Muscle spasticity [Recovered/Resolved]
  - Vaginal discharge [Unknown]
  - Mood swings [Recovered/Resolved]
  - Head discomfort [Recovered/Resolved]
  - Musculoskeletal stiffness [Recovered/Resolved]
  - Hyperacusis [Recovered/Resolved]
  - Alopecia [Recovered/Resolved]
  - Memory impairment [Unknown]
  - Feeling cold [Recovered/Resolved]
  - Menstruation irregular [Unknown]
  - Muscular weakness [Recovered/Resolved]
  - Speech disorder [Recovered/Resolved]
  - Coordination abnormal [Recovered/Resolved]
  - Pain in extremity [Not Recovered/Not Resolved]
  - Back pain [Recovered/Resolved]
  - Vomiting [Recovered/Resolved]
  - Headache [Not Recovered/Not Resolved]
  - Eye pain [Recovered/Resolved]
  - Dry skin [Recovered/Resolved]
  - Pain [Recovering/Resolving]
  - Dysphagia [Recovered/Resolved]
  - Anal incontinence [Recovered/Resolved]
  - Urinary incontinence [Recovered/Resolved]
  - Tongue movement disturbance [Recovering/Resolving]
  - Muscular weakness [Recovering/Resolving]
  - Muscular weakness [Recovered/Resolved]
  - Dyskinesia [Recovered/Resolved]
  - Irritability [Recovering/Resolving]
  - Odynophagia [Recovering/Resolving]
  - Ocular discomfort [Recovering/Resolving]
  - Cognitive disorder [Recovered/Resolved]
  - Muscle spasms [Recovered/Resolved]
  - Dyspnoea [Recovered/Resolved]
  - Sensory disturbance [Recovering/Resolving]
  - Painful respiration [Recovered/Resolved]
  - Asthenia [Recovered/Resolved]
  - Fall [Unknown]
  - Fatigue [Recovered/Resolved]
  - Arthralgia [Recovering/Resolving]
  - Tooth injury [Recovered/Resolved]
  - Fatigue [Recovered/Resolved]
  - Joint range of motion decreased [Recovered/Resolved]
  - Photophobia [Recovered/Resolved]
  - Fatigue [Recovered/Resolved]
  - Acne pustular [Recovered/Resolved]
  - Weight increased [Recovered/Resolved]
  - Fatigue [Recovered/Resolved]
  - Nail ridging [Not Recovered/Not Resolved]
  - Alopecia [Recovered/Resolved]
  - Photophobia [Recovered/Resolved]
  - Pruritus [Recovered/Resolved]
  - Sleep apnoea syndrome [Recovered/Resolved]
  - Intentional product use issue [Unknown]
  - Off label use [Unknown]

NARRATIVE: CASE EVENT DATE: 20200206
